FAERS Safety Report 14026492 (Version 14)
Quarter: 2019Q3

REPORT INFORMATION
  Report Type: Spontaneous
  Country: US (occurrence: US)
  Receive Date: 20170929
  Receipt Date: 20190813
  Transmission Date: 20191004
  Serious: Yes (Hospitalization)
  Sender: FDA-Public Use
  Company Number: US-ACTELION-A-US2017-160243

PATIENT
  Sex: Female
  Weight: 56.24 kg

DRUGS (8)
  1. VELETRI [Suspect]
     Active Substance: EPOPROSTENOL
     Indication: PULMONARY ARTERIAL HYPERTENSION
     Dosage: 57 NG/KG, PER MIN
     Route: 042
  2. OPSUMIT [Suspect]
     Active Substance: MACITENTAN
     Indication: PULMONARY ARTERIAL HYPERTENSION
     Dosage: 10 MG, QD
     Route: 048
  3. VELETRI [Suspect]
     Active Substance: EPOPROSTENOL
     Dosage: 60 NG/KG, PER MIN
     Route: 042
  4. ADCIRCA [Concomitant]
     Active Substance: TADALAFIL
  5. AMLODIPINE [Concomitant]
     Active Substance: AMLODIPINE BESYLATE
  6. VELETRI [Suspect]
     Active Substance: EPOPROSTENOL
     Dosage: 64 NG/KG, PER MIN
     Route: 042
  7. OPSUMIT [Suspect]
     Active Substance: MACITENTAN
     Dosage: UNK
     Route: 048
  8. REMODULIN [Suspect]
     Active Substance: TREPROSTINIL
     Indication: PRODUCT USED FOR UNKNOWN INDICATION
     Dosage: 60 NG/KG, PER MIN
     Route: 042

REACTIONS (22)
  - Catheter management [Recovered/Resolved]
  - Visual impairment [Unknown]
  - Product administration error [Unknown]
  - Catheter site haemorrhage [Unknown]
  - Palpitations [Unknown]
  - Hypoacusis [Unknown]
  - Feeling abnormal [Recovering/Resolving]
  - Diarrhoea [Recovering/Resolving]
  - Pain [Unknown]
  - Pulmonary arterial hypertension [Unknown]
  - Fatigue [Unknown]
  - Condition aggravated [Unknown]
  - Catheter site pruritus [Unknown]
  - Dyspnoea exertional [Unknown]
  - Patient dissatisfaction with treatment [Unknown]
  - Headache [Unknown]
  - Chest pain [Unknown]
  - Pulmonary pain [Unknown]
  - Device dislocation [Recovered/Resolved]
  - Head discomfort [Unknown]
  - Arthralgia [Unknown]
  - Bedridden [Recovering/Resolving]
